FAERS Safety Report 7776051-6 (Version None)
Quarter: 2011Q3

REPORT INFORMATION
  Report Type: 
  Country: None (occurrence: None)
  Receive Date: 20110923
  Receipt Date: 20110913
  Transmission Date: 20111222
  Serious: Yes (Other)
  Sender: FDA-Public Use
  Company Number: JP-ASTRAZENECA-2011SE39883

PATIENT
  Age: 21093 Day
  Sex: Male
  Weight: 58 kg

DRUGS (3)
  1. SEROQUEL [Suspect]
     Route: 048
     Dates: start: 20110620
  2. SEROQUEL [Suspect]
     Indication: SCHIZOPHRENIA
     Route: 048
     Dates: start: 20110516, end: 20110619
  3. ROHYPNOL [Suspect]
     Route: 048
     Dates: start: 20110609

REACTIONS (1)
  - FALL [None]
